FAERS Safety Report 19806710 (Version 3)
Quarter: 2021Q4

REPORT INFORMATION
  Report Type: Spontaneous
  Country: US (occurrence: None)
  Receive Date: 20210908
  Receipt Date: 20211126
  Transmission Date: 20220303
  Serious: Yes (Life-Threatening, Hospitalization, Other)
  Sender: FDA-Public Use
  Company Number: 2021A717115

PATIENT
  Age: 15702 Day
  Sex: Male
  Weight: 122.5 kg

DRUGS (31)
  1. XIGDUO XR [Suspect]
     Active Substance: DAPAGLIFLOZIN PROPANEDIOL\METFORMIN HYDROCHLORIDE
     Indication: Type 2 diabetes mellitus
     Route: 048
     Dates: start: 201508
  2. XIGDUO XR [Suspect]
     Active Substance: DAPAGLIFLOZIN PROPANEDIOL\METFORMIN HYDROCHLORIDE
     Indication: Weight decreased
     Route: 048
     Dates: start: 201508
  3. XIGDUO XR [Suspect]
     Active Substance: DAPAGLIFLOZIN PROPANEDIOL\METFORMIN HYDROCHLORIDE
     Indication: Blood pressure decreased
     Route: 048
     Dates: start: 201508
  4. XIGDUO XR [Suspect]
     Active Substance: DAPAGLIFLOZIN PROPANEDIOL\METFORMIN HYDROCHLORIDE
     Indication: Type 2 diabetes mellitus
     Route: 048
     Dates: start: 20170913
  5. XIGDUO XR [Suspect]
     Active Substance: DAPAGLIFLOZIN PROPANEDIOL\METFORMIN HYDROCHLORIDE
     Indication: Weight decreased
     Route: 048
     Dates: start: 20170913
  6. XIGDUO XR [Suspect]
     Active Substance: DAPAGLIFLOZIN PROPANEDIOL\METFORMIN HYDROCHLORIDE
     Indication: Blood pressure decreased
     Route: 048
     Dates: start: 20170913
  7. XIGDUO XR [Suspect]
     Active Substance: DAPAGLIFLOZIN PROPANEDIOL\METFORMIN HYDROCHLORIDE
     Indication: Type 2 diabetes mellitus
     Route: 048
     Dates: start: 20150831
  8. XIGDUO XR [Suspect]
     Active Substance: DAPAGLIFLOZIN PROPANEDIOL\METFORMIN HYDROCHLORIDE
     Indication: Weight decreased
     Route: 048
     Dates: start: 20150831
  9. XIGDUO XR [Suspect]
     Active Substance: DAPAGLIFLOZIN PROPANEDIOL\METFORMIN HYDROCHLORIDE
     Indication: Blood pressure decreased
     Route: 048
     Dates: start: 20150831
  10. LISINOPRIL [Concomitant]
     Active Substance: LISINOPRIL
  11. SIMVASTATIN [Concomitant]
     Active Substance: SIMVASTATIN
  12. IBUPROFEN [Concomitant]
     Active Substance: IBUPROFEN
  13. DOXYCYCLINE [Concomitant]
     Active Substance: DOXYCYCLINE
  14. GABAPENTIN [Concomitant]
     Active Substance: GABAPENTIN
  15. HYOSCYAMINE [Concomitant]
     Active Substance: HYOSCYAMINE
  16. HYDROCODONE [Concomitant]
     Active Substance: HYDROCODONE
  17. RIFAMPIN [Concomitant]
     Active Substance: RIFAMPIN
  18. DICLOFENAC [Concomitant]
     Active Substance: DICLOFENAC
  19. NAPROXEN [Concomitant]
     Active Substance: NAPROXEN
  20. CYCLOBENZAPRINE [Concomitant]
     Active Substance: CYCLOBENZAPRINE
  21. MINOCYCLINE [Concomitant]
     Active Substance: MINOCYCLINE HYDROCHLORIDE
  22. METFORMIN [Concomitant]
     Active Substance: METFORMIN HYDROCHLORIDE
  23. TRIMETHOPRIM [Concomitant]
     Active Substance: TRIMETHOPRIM
  24. BOLUS [Concomitant]
  25. FLUCONAZOLE [Concomitant]
     Active Substance: FLUCONAZOLE
  26. AMOXICILLIN [Concomitant]
     Active Substance: AMOXICILLIN
  27. SULFAMETHOXAZOLE\TRIMETHOPRIM [Concomitant]
     Active Substance: SULFAMETHOXAZOLE\TRIMETHOPRIM
  28. METHADONE [Concomitant]
     Active Substance: METHADONE HYDROCHLORIDE
  29. GLUCOTROL [Concomitant]
     Active Substance: GLIPIZIDE
  30. MONODOX [Concomitant]
     Active Substance: DOXYCYCLINE
  31. OMEPRAZOLE [Concomitant]
     Active Substance: OMEPRAZOLE
     Dates: start: 20181213

REACTIONS (7)
  - Fournier^s gangrene [Unknown]
  - Musculoskeletal pain [Unknown]
  - Abscess limb [Unknown]
  - Sepsis [Unknown]
  - Gangrene [Unknown]
  - Subcutaneous abscess [Unknown]
  - Cellulitis [Unknown]

NARRATIVE: CASE EVENT DATE: 20180129
